FAERS Safety Report 8208085-1 (Version None)
Quarter: 2012Q1

REPORT INFORMATION
  Report Type: 
  Country: None (occurrence: None)
  Receive Date: 20120314
  Receipt Date: 20120229
  Transmission Date: 20120608
  Serious: Yes (Other)
  Sender: FDA-Public Use
  Company Number: PHHY2012DE017944

PATIENT
  Sex: Male
  Weight: 90 kg

DRUGS (9)
  1. ALLOPURINOL [Concomitant]
     Dosage: 150 MG, DAILY
     Route: 048
  2. ATACAND [Concomitant]
     Dosage: 12.5 MG, DAILY
     Route: 048
  3. SIMVABETA [Concomitant]
  4. ZOMETA [Suspect]
     Indication: BONE DISORDER
     Dosage: 4 MG, EVERY 4 WEEKS
     Route: 042
     Dates: start: 20110418
  5. BEVACIZUMAB [Concomitant]
     Dosage: UNK UKN, UNK
     Dates: start: 20110411
  6. LERCANIDIPINE [Concomitant]
     Dosage: 10 MG, DAILY
     Route: 048
  7. METOPROLOL [Concomitant]
     Dosage: 50 MG, DAILY
  8. FUROSEMIDE [Concomitant]
     Dosage: 20 MG, DAILY
     Route: 048
  9. ROFERON-A [Concomitant]
     Dosage: UNK UKN, UNK
     Dates: start: 20110411

REACTIONS (2)
  - GINGIVITIS [None]
  - BONE FISTULA [None]
